FAERS Safety Report 24172320 (Version 2)
Quarter: 2024Q3

REPORT INFORMATION
  Report Type: Spontaneous
  Country: US (occurrence: US)
  Receive Date: 20240805
  Receipt Date: 20240805
  Transmission Date: 20241017
  Serious: Yes (Hospitalization)
  Sender: ROCHE
  Company Number: US-ROCHE-10000047668

PATIENT
  Sex: Male
  Weight: 79.83 kg

DRUGS (1)
  1. AVASTIN [Suspect]
     Active Substance: BEVACIZUMAB
     Indication: Macular degeneration
     Route: 021
     Dates: start: 2023

REACTIONS (3)
  - Off label use [Unknown]
  - Vomiting [Recovered/Resolved]
  - Depressed level of consciousness [Recovered/Resolved]
